FAERS Safety Report 24375799 (Version 1)
Quarter: 2024Q3

REPORT INFORMATION
  Report Type: Spontaneous
  Country: GB (occurrence: GB)
  Receive Date: 20240928
  Receipt Date: 20240928
  Transmission Date: 20241016
  Serious: Yes (Other)
  Sender: TEVA
  Company Number: GB-MHRA-TPP7022593C10338491YC1726761218601

PATIENT
  Age: 51 Year
  Sex: Female
  Weight: 58 kg

DRUGS (4)
  1. RAMIPRIL [Suspect]
     Active Substance: RAMIPRIL
     Indication: Ill-defined disorder
     Route: 065
     Dates: start: 20240115, end: 20240919
  2. PROPRANOLOL [Concomitant]
     Active Substance: PROPRANOLOL HYDROCHLORIDE
     Indication: Anxiety
     Dosage: TIME INTERVAL: 0.33333333 DAYS: PRN
     Dates: start: 20240115
  3. ACETAMINOPHEN [Concomitant]
     Active Substance: ACETAMINOPHEN
     Indication: Ill-defined disorder
     Dosage: TAKE ONE OR TWO TABLETS EVERY 4 TO 6 HOURS WHEN...
     Dates: start: 20240115
  4. ALUMINIUM CHLORIDE HEXAHYDRATE [Concomitant]
     Indication: Ill-defined disorder
     Dosage: APPLY DAILY
     Dates: start: 20240115

REACTIONS (1)
  - Glomerular filtration rate decreased [Unknown]
